FAERS Safety Report 19699828 (Version 1)
Quarter: 2021Q3

REPORT INFORMATION
  Report Type: Report from Study
  Country: TW (occurrence: TW)
  Receive Date: 20210813
  Receipt Date: 20210813
  Transmission Date: 20211014
  Serious: Yes (Death)
  Sender: FDA-Public Use
  Company Number: TW-ASTRAZENECA-2021A677824

PATIENT
  Age: 85 Year
  Sex: Male

DRUGS (1)
  1. IMFINZI [Suspect]
     Active Substance: DURVALUMAB
     Route: 042
     Dates: start: 20201214

REACTIONS (1)
  - Death [Fatal]

NARRATIVE: CASE EVENT DATE: 20210520
